FAERS Safety Report 23962304 (Version 1)
Quarter: 2024Q2

REPORT INFORMATION
  Report Type: Spontaneous
  Country: US (occurrence: None)
  Receive Date: 20240611
  Receipt Date: 20240611
  Transmission Date: 20240717
  Serious: Yes (Hospitalization)
  Sender: FDA-Public Use
  Company Number: None

PATIENT
  Age: 62 Year
  Sex: Female

DRUGS (10)
  1. AUBAGIO [Suspect]
     Active Substance: TERIFLUNOMIDE
     Indication: Multiple sclerosis
     Dosage: FREQUENCY : DAILY;?
     Route: 048
     Dates: start: 20190827
  2. ACETAMINOPHEN [Concomitant]
     Active Substance: ACETAMINOPHEN
  3. AMITRIPTYLINE [Concomitant]
     Active Substance: AMITRIPTYLINE
  4. AMOXICILLIN [Concomitant]
     Active Substance: AMOXICILLIN
  5. BACLOFEN [Concomitant]
     Active Substance: BACLOFEN
  6. CLOPIDOGREL [Concomitant]
     Active Substance: CLOPIDOGREL BISULFATE
  7. DULOXETINE [Concomitant]
     Active Substance: DULOXETINE
  8. IRON [Concomitant]
     Active Substance: IRON
  9. LANSOPRAZOLE [Concomitant]
     Active Substance: LANSOPRAZOLE
  10. LEVOTHYROXINE [Concomitant]
     Active Substance: LEVOTHYROXINE\LEVOTHYROXINE SODIUM

REACTIONS (6)
  - Fall [None]
  - Emphysema [None]
  - Disease complication [None]
  - Multiple sclerosis relapse [None]
  - Asthenia [None]
  - Bedridden [None]

NARRATIVE: CASE EVENT DATE: 20240529
